FAERS Safety Report 10168332 (Version 2)
Quarter: 2014Q3

REPORT INFORMATION
  Report Type: Report from Study
  Country: US (occurrence: US)
  Receive Date: 20140512
  Receipt Date: 20140703
  Transmission Date: 20150326
  Serious: Yes (Other)
  Sender: FDA-Public Use
  Company Number: PHEH2014US009571

PATIENT
  Sex: Male
  Weight: 91 kg

DRUGS (1)
  1. TEGRETOL [Suspect]
     Active Substance: CARBAMAZEPINE
     Dosage: 400 MG, UNK
     Route: 048

REACTIONS (6)
  - Aortic valve stenosis [Unknown]
  - Blood pressure increased [Unknown]
  - Convulsion [Unknown]
  - Fatigue [Unknown]
  - Hypotension [Unknown]
  - Concomitant disease progression [Unknown]
